FAERS Safety Report 25166805 (Version 1)
Quarter: 2025Q2

REPORT INFORMATION
  Report Type: Spontaneous
  Country: US (occurrence: US)
  Receive Date: 20250407
  Receipt Date: 20250407
  Transmission Date: 20250717
  Serious: Yes (Death, Life-Threatening, Hospitalization)
  Sender: ELI LILLY AND CO
  Company Number: US-ELI_LILLY_AND_COMPANY-US202504003364

PATIENT
  Age: 45 Year
  Sex: Female

DRUGS (1)
  1. TIRZEPATIDE [Suspect]
     Active Substance: TIRZEPATIDE
     Indication: Product used for unknown indication
     Route: 065

REACTIONS (6)
  - Cardiac arrest [Fatal]
  - Respiratory arrest [Fatal]
  - Pneumonia aspiration [Unknown]
  - Acute respiratory distress syndrome [Unknown]
  - Brain oedema [Unknown]
  - Brain injury [Unknown]
